FAERS Safety Report 7720120-3 (Version None)
Quarter: 2011Q3

REPORT INFORMATION
  Report Type: 
  Country: None (occurrence: None)
  Receive Date: 20110831
  Receipt Date: 20110825
  Transmission Date: 20111222
  Serious: Yes (Other)
  Sender: FDA-Public Use
  Company Number: US-TEVA-297994USA

PATIENT
  Sex: Female

DRUGS (1)
  1. ALDOMET [Suspect]

REACTIONS (5)
  - HYPOTENSION [None]
  - VISUAL IMPAIRMENT [None]
  - VERTIGO [None]
  - CEREBROVASCULAR ACCIDENT [None]
  - MIGRAINE [None]
